FAERS Safety Report 5460328-3 (Version None)
Quarter: 2007Q3

REPORT INFORMATION
  Report Type: 
  Country: None (occurrence: None)
  Receive Date: 20070919
  Receipt Date: 20070622
  Transmission Date: 20080115
  Serious: No
  Sender: FDA-Public Use
  Company Number: US-ASTRAZENECA-2007UW15069

PATIENT
  Age: 35 Year
  Sex: Female
  Weight: 65.3 kg

DRUGS (2)
  1. SEROQUEL [Suspect]
     Indication: INSOMNIA
     Route: 048
     Dates: start: 20070501
  2. MIRALAX [Concomitant]

REACTIONS (2)
  - DYSURIA [None]
  - PALPITATIONS [None]
